FAERS Safety Report 12184981 (Version 1)
Quarter: 2016Q1

REPORT INFORMATION
  Report Type: Spontaneous
  Country: US (occurrence: US)
  Receive Date: 20160316
  Receipt Date: 20160316
  Transmission Date: 20160526
  Serious: Yes (Death, Hospitalization)
  Sender: FDA-Public Use
  Company Number: US-SA-2016SA052697

PATIENT
  Age: 69 Year
  Sex: Male

DRUGS (2)
  1. SOLOSTAR [Concomitant]
     Active Substance: DEVICE
     Indication: DEVICE THERAPY
  2. LANTUS SOLOSTAR [Suspect]
     Active Substance: INSULIN GLARGINE
     Indication: DIABETES MELLITUS
     Dosage: DOSE:50 UNIT(S)
     Route: 065

REACTIONS (14)
  - Cardiac disorder [Unknown]
  - Hip fracture [Unknown]
  - Fall [Unknown]
  - Gait disturbance [Unknown]
  - Oedema peripheral [Unknown]
  - Death [Fatal]
  - Cardiac failure congestive [Unknown]
  - Dyspnoea [Unknown]
  - Renal failure [Unknown]
  - Secretion discharge [Unknown]
  - Skin ulcer [Unknown]
  - Renal disorder [Unknown]
  - Dizziness [Unknown]
  - Inappropriate schedule of drug administration [Unknown]

NARRATIVE: CASE EVENT DATE: 201601
